FAERS Safety Report 17882446 (Version 2)
Quarter: 2022Q2

REPORT INFORMATION
  Report Type: Spontaneous
  Country: FR (occurrence: FR)
  Receive Date: 20200610
  Receipt Date: 20220525
  Transmission Date: 20220721
  Serious: Yes (Other)
  Sender: FDA-Public Use
  Company Number: FR-BAYER-2020-092463

PATIENT
  Age: 35 Year
  Sex: Female

DRUGS (7)
  1. ESTRADIOL [Suspect]
     Active Substance: ESTRADIOL
     Indication: Product used for unknown indication
     Dosage: 2 MILLIGRAM, QD (FOR 1 YEAR)
     Route: 065
  2. CYPROTERONE [Suspect]
     Active Substance: CYPROTERONE
     Indication: Hirsutism
     Dosage: 50 MILLIGRAM, QD (FOR 9 YEARS)
     Route: 065
  3. ETHINYL ESTRADIOL\LEVONORGESTREL [Suspect]
     Active Substance: ETHINYL ESTRADIOL\LEVONORGESTREL
     Indication: Contraception
     Dosage: UNK, FOR 9 YEARS; 50G/30G DURING 6 DAYS; 75G/40G DURING 5 DAYS AND 125G/30G DURING 10 DAYS
     Route: 065
  4. ETHINYL ESTRADIOL\LEVONORGESTREL [Suspect]
     Active Substance: ETHINYL ESTRADIOL\LEVONORGESTREL
     Dosage: UNK, 75/40 MICRO GRAMS DURING 5 DAYS
     Route: 065
  5. ETHINYL ESTRADIOL\LEVONORGESTREL [Suspect]
     Active Substance: ETHINYL ESTRADIOL\LEVONORGESTREL
     Dosage: UNK, 125/30 MICRO GRAMS DURING 10 DAYS
     Route: 065
  6. LEVOTHYROXINE [Concomitant]
     Active Substance: LEVOTHYROXINE
     Indication: Product used for unknown indication
     Dosage: 100 MICROGRAM, QD
     Route: 065
  7. LEVOTHYROXINE [Concomitant]
     Active Substance: LEVOTHYROXINE
     Dosage: 1000 MICROGRAM, QD
     Route: 065

REACTIONS (1)
  - Meningioma [Recovering/Resolving]
